FAERS Safety Report 7639425-X (Version None)
Quarter: 2011Q3

REPORT INFORMATION
  Report Type: 
  Country: None (occurrence: None)
  Receive Date: 20110727
  Receipt Date: 20110708
  Transmission Date: 20111222
  Serious: Yes (Hospitalization)
  Sender: FDA-Public Use
  Company Number: US-GLAXOSMITHKLINE-A0838831A

PATIENT
  Age: 59 Year
  Sex: Female
  Weight: 126.8 kg

DRUGS (7)
  1. GLUCOVANCE [Concomitant]
  2. AVANDIA [Suspect]
     Indication: DIABETES MELLITUS
     Dosage: 4MG PER DAY
     Route: 048
     Dates: start: 20050201, end: 20070112
  3. LIPITOR [Concomitant]
  4. ALTACE [Concomitant]
  5. ADVAIR DISKUS 100/50 [Concomitant]
  6. METOPROLOL TARTRATE [Concomitant]
  7. METFORMIN HCL [Concomitant]

REACTIONS (5)
  - OEDEMA PERIPHERAL [None]
  - CORONARY ARTERY STENOSIS [None]
  - ACUTE MYOCARDIAL INFARCTION [None]
  - MYOCARDIAL INFARCTION [None]
  - ARTERIOSCLEROSIS CORONARY ARTERY [None]
